FAERS Safety Report 8928665 (Version 1)
Quarter: 2012Q4

REPORT INFORMATION
  Report Type: Spontaneous
  Country: US (occurrence: None)
  Receive Date: 20121126
  Receipt Date: 20121126
  Transmission Date: 20130627
  Serious: Yes (Other)
  Sender: FDA-Public Use
  Company Number: None

PATIENT
  Age: 46 Year
  Sex: Female
  Weight: 94.8 kg

DRUGS (1)
  1. VICTOZA [Suspect]
     Indication: TYPE II DIABETES MELLITUS
     Dosage: 1.8 once a day Other
     Route: 050
     Dates: start: 20120601, end: 20121113

REACTIONS (1)
  - Osteoarthritis [None]
